FAERS Safety Report 22659638 (Version 2)
Quarter: 2024Q2

REPORT INFORMATION
  Report Type: Spontaneous
  Country: US (occurrence: US)
  Receive Date: 20230630
  Receipt Date: 20240415
  Transmission Date: 20240716
  Serious: No
  Sender: FDA-Public Use
  Company Number: US-PHARMING-PHAUS2023000468

PATIENT

DRUGS (1)
  1. RUCONEST [Suspect]
     Active Substance: CONESTAT ALFA
     Indication: Hereditary angioedema
     Dosage: 2100 IU, AS NEEDED
     Route: 042
     Dates: start: 20180718

REACTIONS (1)
  - Alcohol abuse [Unknown]

NARRATIVE: CASE EVENT DATE: 20230607
